FAERS Safety Report 5620240-3 (Version None)
Quarter: 2008Q1

REPORT INFORMATION
  Report Type: 
  Country: None (occurrence: None)
  Receive Date: 20080208
  Receipt Date: 20080205
  Transmission Date: 20080703
  Serious: Yes (Other)
  Sender: FDA-Public Use
  Company Number: B0465715A

PATIENT
  Age: 29 Year
  Sex: Female

DRUGS (6)
  1. DILATREND [Suspect]
     Dosage: 3.125MG TWICE PER DAY
     Route: 065
     Dates: end: 20070418
  2. PROGRAF [Suspect]
     Route: 065
  3. URBASON [Concomitant]
     Route: 065
  4. PANTOZOL [Concomitant]
     Indication: DRUG USE FOR UNKNOWN INDICATION
     Route: 065
  5. BLOPRESS [Concomitant]
     Indication: DRUG USE FOR UNKNOWN INDICATION
     Route: 065
  6. METOPROLOL TARTRATE [Concomitant]
     Indication: DRUG USE FOR UNKNOWN INDICATION
     Route: 065

REACTIONS (2)
  - PREMATURE LABOUR [None]
  - PREMATURE SEPARATION OF PLACENTA [None]
